FAERS Safety Report 8490006-8 (Version None)
Quarter: 2012Q2

REPORT INFORMATION
  Report Type: 
  Country: None (occurrence: None)
  Receive Date: 20120626
  Receipt Date: 20120618
  Transmission Date: 20120825
  Serious: Yes (Hospitalization, Other)
  Sender: FDA-Public Use
  Company Number: FK201201711

PATIENT
  Age: 47 Year
  Sex: Female

DRUGS (5)
  1. ERLOTINIB HYDROCHLORIDE [Suspect]
     Indication: BREAST CANCER METASTATIC
     Dosage: UNKNOWN, DAYS 5 THROUGH 21 OF A 28 DAY CYCLE, ORAL
     Route: 047
  2. PACLITAXEL [Suspect]
     Indication: HEPATIC NEOPLASM MALIGNANT
     Dosage: 90 MG/M2, WEEKLY
  3. DEXAMETHASONE SODIUM PHOSPHATE [Suspect]
     Indication: PROPHYLAXIS OF NAUSEA AND VOMITING
     Dosage: 12 MG, ONCE: DAYS 1 AND 2, ORAL
     Route: 048
  4. BENDAMUSTINE HYDROCHLORIDE [Suspect]
     Indication: BREAST CANCER METASTATIC
     Dosage: DAY 1 AND 2 OF A 28-DAY CYCLE, INTRAVENOUS
     Route: 042
  5. BEVACIZUMAB (BEVACIZUMAB) [Suspect]
     Indication: HEPATIC NEOPLASM MALIGNANT
     Dosage: 15 MG/M2, WEEKLY

REACTIONS (6)
  - PNEUMOCYSTIS JIROVECI PNEUMONIA [None]
  - HYPOXIA [None]
  - SEPSIS [None]
  - NEOPLASM PROGRESSION [None]
  - TACHYCARDIA [None]
  - ACUTE RESPIRATORY DISTRESS SYNDROME [None]
